FAERS Safety Report 24434331 (Version 1)
Quarter: 2024Q4

REPORT INFORMATION
  Report Type: Spontaneous
  Country: US (occurrence: US)
  Receive Date: 20241014
  Receipt Date: 20241014
  Transmission Date: 20250115
  Serious: Yes (Other)
  Sender: TAKEDA
  Company Number: US-TAKEDA-2024TUS100908

PATIENT
  Sex: Female
  Weight: 58 kg

DRUGS (1)
  1. LIVTENCITY [Suspect]
     Active Substance: MARIBAVIR
     Indication: Cytomegalovirus infection
     Dosage: 200 MILLIGRAM, QD
     Route: 048
     Dates: start: 202408

REACTIONS (3)
  - Breast abscess [Unknown]
  - Subcutaneous abscess [Unknown]
  - Dysgeusia [Unknown]
